FAERS Safety Report 13028473 (Version 1)
Quarter: 2016Q4

REPORT INFORMATION
  Report Type: Spontaneous
  Country: FR (occurrence: FR)
  Receive Date: 20161214
  Receipt Date: 20161214
  Transmission Date: 20170207
  Serious: Yes (Hospitalization)
  Sender: FDA-Public Use
  Company Number: FR-PFIZER INC-2016571707

PATIENT
  Age: 46 Year
  Sex: Female

DRUGS (5)
  1. LYRICA [Suspect]
     Active Substance: PREGABALIN
     Dosage: 2.1 G, SINGLE, EVENING
     Route: 048
     Dates: start: 20161116, end: 20161116
  2. RIVOTRIL [Suspect]
     Active Substance: CLONAZEPAM
     Indication: TRIGEMINAL NEURALGIA
     Dosage: UNK
     Route: 048
  3. TEGRETOL [Suspect]
     Active Substance: CARBAMAZEPINE
     Indication: TRIGEMINAL NEURALGIA
     Dosage: UNK
     Route: 048
  4. PROPRANOLOL [Suspect]
     Active Substance: PROPRANOLOL\PROPRANOLOL HYDROCHLORIDE
     Indication: TACHYCARDIA
     Dosage: 2 G, SINGLE, EVENING
     Route: 048
     Dates: start: 20161116, end: 20161116
  5. SYMBICORT [Concomitant]
     Active Substance: BUDESONIDE\FORMOTEROL FUMARATE DIHYDRATE
     Indication: ASTHMA
     Dosage: UNK
     Route: 055

REACTIONS (3)
  - Somnolence [Recovered/Resolved]
  - Bradycardia [Recovered/Resolved]
  - Intentional overdose [Recovered/Resolved]

NARRATIVE: CASE EVENT DATE: 20161116
